FAERS Safety Report 12041781 (Version 2)
Quarter: 2016Q1

REPORT INFORMATION
  Report Type: Spontaneous
  Country: US (occurrence: US)
  Receive Date: 20160208
  Receipt Date: 20160303
  Transmission Date: 20160526
  Serious: Yes (Life-Threatening, Hospitalization)
  Sender: FDA-Public Use
  Company Number: US-PFIZER INC-2016066243

PATIENT
  Age: 62 Year
  Sex: Female

DRUGS (9)
  1. TIGECYCLINE. [Concomitant]
     Active Substance: TIGECYCLINE
     Dosage: 100 MG, 2X/DAY (Q12H)
  2. COLISTIN [Suspect]
     Active Substance: COLISTIN
     Dosage: 150 MG, 2X/DAY (Q12 HOURS) (300MG LOAD)
  3. VANCOMYCIN [Concomitant]
     Active Substance: VANCOMYCIN
     Dosage: 1 G, 2X/DAY (Q12 HOURS)
     Route: 042
  4. PIPERACILLIN AND TAZOBACTAM [Concomitant]
     Active Substance: PIPERACILLIN SODIUM\TAZOBACTAM SODIUM
     Dosage: 3.375 G, 3X/DAY ( Q8 HOURS) (INFUSED OVER FOUR HOURS)
  5. GENTAMICIN SULFATE. [Suspect]
     Active Substance: GENTAMICIN SULFATE
     Dosage: 7 MG/KG, DAILY (Q24 HOURS)
     Route: 042
  6. COLISTIN [Suspect]
     Active Substance: COLISTIN
     Dosage: 300 MG, SINGLE
  7. MEROPENEM. [Concomitant]
     Active Substance: MEROPENEM
     Dosage: 2 G, 3X/DAY ( Q8 HOURS)
  8. CEFEPIME [Suspect]
     Active Substance: CEFEPIME HYDROCHLORIDE
     Dosage: 2 G, 3X/DAY (Q8 HOURS)
  9. TETRACYCLINE HCL [Suspect]
     Active Substance: TETRACYCLINE HYDROCHLORIDE
     Dosage: 100 MG, 2X/DAY (Q12 HOURS)

REACTIONS (3)
  - Metabolic acidosis [Unknown]
  - Drug resistance [Unknown]
  - Mental status changes [Not Recovered/Not Resolved]
